FAERS Safety Report 25767997 (Version 1)
Quarter: 2025Q3

REPORT INFORMATION
  Report Type: Spontaneous
  Country: US (occurrence: US)
  Receive Date: 20250905
  Receipt Date: 20250905
  Transmission Date: 20251020
  Serious: No
  Sender: DOMPE FARMACEUTICI
  Company Number: US-FARMAPROD-202505-1681

PATIENT
  Age: 67 Year
  Sex: Female

DRUGS (22)
  1. OXERVATE [Suspect]
     Active Substance: CENEGERMIN-BKBJ
     Indication: Neurotrophic keratopathy
     Route: 047
     Dates: start: 20250512
  2. OXERVATE [Suspect]
     Active Substance: CENEGERMIN-BKBJ
     Indication: Hypoaesthesia eye
  3. OXERVATE [Suspect]
     Active Substance: CENEGERMIN-BKBJ
  4. HYDROCORTISONE-ALOE [Concomitant]
  5. DICLOFENAC SODIUM [Concomitant]
     Active Substance: DICLOFENAC SODIUM
  6. EZETIMIBE [Concomitant]
     Active Substance: EZETIMIBE
  7. ATORVASTATIN CALCIUM [Concomitant]
     Active Substance: ATORVASTATIN CALCIUM
  8. IRON [Concomitant]
     Active Substance: IRON
  9. CALCIUM [Concomitant]
     Active Substance: CALCIUM
  10. METHENAMINE HIPPURATE [Concomitant]
     Active Substance: METHENAMINE HIPPURATE
  11. CALCITRIOL [Concomitant]
     Active Substance: CALCITRIOL
  12. BIOTIN [Concomitant]
     Active Substance: BIOTIN
  13. LEXAPRO [Concomitant]
     Active Substance: ESCITALOPRAM OXALATE
  14. AMLODIPINE BESYLATE [Concomitant]
     Active Substance: AMLODIPINE BESYLATE
  15. LOSARTAN POTASSIUM [Concomitant]
     Active Substance: LOSARTAN POTASSIUM
  16. QUETIAPINE FUMARATE [Concomitant]
     Active Substance: QUETIAPINE FUMARATE
  17. HYDROCHLOROTHIAZIDE [Concomitant]
     Active Substance: HYDROCHLOROTHIAZIDE
  18. LEVOTHYROXINE SODIUM [Concomitant]
     Active Substance: LEVOTHYROXINE SODIUM
  19. CEQUA [Concomitant]
     Active Substance: CYCLOSPORINE
  20. PREGABALIN [Concomitant]
     Active Substance: PREGABALIN
     Indication: Neuralgia
  21. FUROSEMIDE [Concomitant]
     Active Substance: FUROSEMIDE
  22. CELEBREX [Concomitant]
     Active Substance: CELECOXIB

REACTIONS (15)
  - Fall [Unknown]
  - Back pain [Not Recovered/Not Resolved]
  - Neck pain [Unknown]
  - Musculoskeletal pain [Unknown]
  - Confusional state [Unknown]
  - Vision blurred [Unknown]
  - Eye pain [Not Recovered/Not Resolved]
  - Photophobia [Not Recovered/Not Resolved]
  - Illness [Unknown]
  - Hypoacusis [Unknown]
  - Sleep disorder [Not Recovered/Not Resolved]
  - Product dose omission issue [Unknown]
  - Periorbital pain [Unknown]
  - Oedema peripheral [Unknown]
  - Peripheral circulatory failure [Unknown]

NARRATIVE: CASE EVENT DATE: 20250521
